FAERS Safety Report 7668719-7 (Version None)
Quarter: 2011Q3

REPORT INFORMATION
  Report Type: 
  Country: None (occurrence: None)
  Receive Date: 20110808
  Receipt Date: 20110728
  Transmission Date: 20111222
  Serious: Yes (Hospitalization)
  Sender: FDA-Public Use
  Company Number: AT-JNJFOC-20110800573

PATIENT
  Sex: Male

DRUGS (1)
  1. XARELTO [Suspect]
     Indication: ILL-DEFINED DISORDER
     Route: 048

REACTIONS (2)
  - TREATMENT NONCOMPLIANCE [None]
  - PULMONARY EMBOLISM [None]
